FAERS Safety Report 15074207 (Version 3)
Quarter: 2018Q4

REPORT INFORMATION
  Report Type: Other
  Country: IT (occurrence: IT)
  Receive Date: 20180627
  Receipt Date: 20181030
  Transmission Date: 20190204
  Serious: Yes (Hospitalization, Other)
  Sender: FDA-Public Use
  Company Number: IT-MACLEODS PHARMACEUTICALS US LTD-MAC2018014371

PATIENT

DRUGS (2)
  1. LEVOFLOXACIN. [Suspect]
     Active Substance: LEVOFLOXACIN
     Indication: BRONCHITIS
     Dosage: 500 MILLIGRAM, QD, OVERDOSE, MEDICATION ERROR, MISUSE, ABUSE
     Route: 048
     Dates: start: 20180522, end: 20180526
  2. WARFARIN [Interacting]
     Active Substance: WARFARIN
     Indication: PRODUCT USED FOR UNKNOWN INDICATION
     Dosage: UNK, OVERDOSE, MEDICATION ERROR, MISUSE, ABUSE
     Route: 065

REACTIONS (8)
  - International normalised ratio increased [Recovering/Resolving]
  - Acute kidney injury [Recovering/Resolving]
  - Drug abuse [Unknown]
  - Medication error [Unknown]
  - Agitation [Recovering/Resolving]
  - Abdominal pain upper [Unknown]
  - Drug interaction [Unknown]
  - Overdose [Unknown]

NARRATIVE: CASE EVENT DATE: 2018
